FAERS Safety Report 20209394 (Version 7)
Quarter: 2023Q1

REPORT INFORMATION
  Report Type: Report from Study
  Country: JP (occurrence: JP)
  Receive Date: 20211220
  Receipt Date: 20230321
  Transmission Date: 20230417
  Serious: Yes (Hospitalization, Other)
  Sender: FDA-Public Use
  Company Number: JP-TAKEDA-2019TJP003231

PATIENT
  Age: 51 Year
  Sex: Male

DRUGS (28)
  1. LEUPROLIDE ACETATE [Suspect]
     Active Substance: LEUPROLIDE ACETATE
     Indication: Bulbospinal muscular atrophy congenital
     Dosage: 11.25 MILLIGRAM, Q3MONTHS
     Route: 058
     Dates: start: 20181217
  2. AMBROXOL HYDROCHLORIDE [Concomitant]
     Active Substance: AMBROXOL HYDROCHLORIDE
     Indication: Product used for unknown indication
     Dosage: TIME INTERVAL: 0.33333333 DAYS: 15 MILLIGRAM, TID
     Route: 065
  3. AMBROXOL HYDROCHLORIDE [Concomitant]
     Active Substance: AMBROXOL HYDROCHLORIDE
     Indication: Product used for unknown indication
     Dosage: 15 MILLIGRAM, TID
     Route: 065
  4. CARBOCYSTEINE [Concomitant]
     Active Substance: CARBOCYSTEINE
     Indication: Product used for unknown indication
     Dosage: TIME INTERVAL: 0.33333333 DAYS: 500 MILLIGRAM, TID
     Route: 065
  5. CARBOCYSTEINE [Concomitant]
     Active Substance: CARBOCYSTEINE
     Indication: Product used for unknown indication
     Dosage: 500 MILLIGRAM, TID
     Route: 065
  6. METHYLCOBALAMIN [Concomitant]
     Active Substance: METHYLCOBALAMIN
     Indication: Bulbospinal muscular atrophy congenital
     Dosage: TIME INTERVAL: 0.33333333 DAYS: 500 MICROGRAM, TID
     Route: 065
  7. METHYLCOBALAMIN [Concomitant]
     Active Substance: METHYLCOBALAMIN
     Indication: Bulbospinal muscular atrophy congenital
     Dosage: 500 MICROGRAM, TID
     Route: 065
  8. TEPRENONE [Concomitant]
     Active Substance: TEPRENONE
     Indication: Gastrooesophageal reflux disease
     Dosage: 50 MILLIGRAM, BID
     Route: 065
  9. TEPRENONE [Concomitant]
     Active Substance: TEPRENONE
     Indication: Gastrooesophageal reflux disease
     Dosage: 50 MILLIGRAM, BID
     Route: 065
  10. MAGNESIUM OXIDE [Concomitant]
     Active Substance: MAGNESIUM OXIDE
     Indication: Constipation
     Dosage: 330 MILLIGRAM, BID
     Route: 065
  11. MAGNESIUM OXIDE [Concomitant]
     Active Substance: MAGNESIUM OXIDE
     Indication: Constipation
     Dosage: 330 MILLIGRAM, BID
     Route: 065
  12. AMLODIPINE BESYLATE\TELMISARTAN [Concomitant]
     Active Substance: AMLODIPINE BESYLATE\TELMISARTAN
     Indication: Product used for unknown indication
     Dosage: 1.00 DOSAGE FORM
     Route: 065
  13. CLARITIN [Concomitant]
     Active Substance: LORATADINE
     Indication: Rhinitis allergic
     Dosage: 10 MILLIGRAM, QD
     Route: 065
  14. SINGULAIR [Concomitant]
     Active Substance: MONTELUKAST SODIUM
     Indication: Product used for unknown indication
     Dosage: 10 MILLIGRAM, QD
     Route: 065
  15. VOLTAREN [Concomitant]
     Active Substance: DICLOFENAC SODIUM
     Indication: Extremity contracture
     Dosage: TIME INTERVAL: 0.33333333 DAYS: UNK UNK, TID
     Route: 065
  16. VOLTAREN [Concomitant]
     Active Substance: DICLOFENAC SODIUM
     Indication: Extremity contracture
     Dosage: UNK UNK, TID
     Route: 065
  17. RINDERON VG [Concomitant]
     Active Substance: BETAMETHASONE VALERATE\GENTAMICIN SULFATE
     Indication: Impetigo
     Dosage: UNK
     Route: 065
  18. RINDERON VG [Concomitant]
     Active Substance: BETAMETHASONE VALERATE\GENTAMICIN SULFATE
     Indication: Impetigo
     Dosage: UNK
     Route: 065
  19. Posterisan forte [Concomitant]
     Indication: Haemorrhoids
     Dosage: UNK UNK, BID
     Route: 065
  20. Posterisan forte [Concomitant]
     Indication: Haemorrhoids
     Dosage: UNK UNK, BID
     Route: 065
  21. GENTAMICIN SULFATE [Concomitant]
     Active Substance: GENTAMICIN SULFATE
     Indication: Impetigo
     Dosage: UNK
     Route: 065
  22. GENTAMICIN SULFATE [Concomitant]
     Active Substance: GENTAMICIN SULFATE
     Indication: Impetigo
     Dosage: UNK
     Route: 065
  23. NIZORAL [Concomitant]
     Active Substance: KETOCONAZOLE
     Indication: Tinea infection
     Dosage: UNK
     Route: 065
  24. NIZORAL [Concomitant]
     Active Substance: KETOCONAZOLE
     Indication: Tinea infection
     Dosage: UNK
     Route: 065
  25. ENSURE [Concomitant]
     Active Substance: AMINO ACIDS\DEXTROSE\ELECTROLYTES NOS\SOYBEAN OIL\VITAMINS
     Indication: Dysphagia
     Dosage: 250 MILLILITER, QD
     Route: 065
  26. TRAMCET [Concomitant]
     Active Substance: ACETAMINOPHEN\TRAMADOL
     Indication: Peripheral ischaemia
     Dosage: TIME INTERVAL: 0.33333333 DAYS: 1 DOSAGE FORM, TID
     Route: 065
  27. TRAMCET [Concomitant]
     Active Substance: ACETAMINOPHEN\TRAMADOL
     Indication: Peripheral ischaemia
     Dosage: 1 DOSAGE FORM, TID
     Route: 065
  28. LEVOFLOXACIN [Concomitant]
     Active Substance: LEVOFLOXACIN
     Indication: Product used for unknown indication
     Dosage: 500 MILLIGRAM
     Route: 065
     Dates: start: 20201207, end: 20201213

REACTIONS (9)
  - Colon cancer [Recovered/Resolved]
  - Nausea [Recovered/Resolved]
  - Vomiting [Recovered/Resolved]
  - Hyper HDL cholesterolaemia [Recovered/Resolved]
  - Hyponatraemia [Recovered/Resolved]
  - Decubitus ulcer [Recovering/Resolving]
  - Hypertriglyceridaemia [Unknown]
  - Anaemia [Not Recovered/Not Resolved]
  - Constipation [Not Recovered/Not Resolved]

NARRATIVE: CASE EVENT DATE: 20190204
